FAERS Safety Report 7622072-3 (Version None)
Quarter: 2011Q3

REPORT INFORMATION
  Report Type: 
  Country: None (occurrence: None)
  Receive Date: 20110720
  Receipt Date: 20101130
  Transmission Date: 20111222
  Serious: Yes (Hospitalization, Other)
  Sender: FDA-Public Use
  Company Number: US-BAYER-201038036NA

PATIENT
  Age: 16 Year
  Sex: Female
  Weight: 95.238 kg

DRUGS (10)
  1. ALBUTEROL SULFATE AUTOHALER [Concomitant]
     Indication: ASTHMA
     Dosage: UNK
     Dates: start: 20010101, end: 20100101
  2. DROSPIRENONE AND ETHINYL ESTRADIOL [Suspect]
     Indication: ACNE
  3. ATARAX [Concomitant]
     Indication: MULTIPLE ALLERGIES
     Dosage: UNK
     Dates: start: 19980101, end: 20100101
  4. YAZ [Suspect]
     Indication: PREMENSTRUAL SYNDROME
  5. CEFDINIR [Concomitant]
     Dosage: UNK
     Route: 048
     Dates: start: 20070906
  6. YAZ [Suspect]
     Indication: ACNE
     Dosage: UNK
     Dates: start: 20050101, end: 20070101
  7. OXYCODONE AND ACETAMINOPHEN [Concomitant]
     Dosage: UNK
     Route: 048
     Dates: start: 20070921
  8. AZITHROMYCIN [Concomitant]
     Dosage: UNK
     Route: 048
     Dates: start: 20070911
  9. YASMIN [Suspect]
     Indication: ACNE
  10. OMNICEF [Concomitant]
     Indication: OTITIS MEDIA
     Dosage: UNK
     Dates: start: 20070911

REACTIONS (5)
  - CHOLECYSTITIS CHRONIC [None]
  - GALLBLADDER CHOLESTEROLOSIS [None]
  - CHOLECYSTITIS ACUTE [None]
  - CHOLELITHIASIS [None]
  - PAIN [None]
